FAERS Safety Report 5990795-8 (Version None)
Quarter: 2008Q4

REPORT INFORMATION
  Report Type: 
  Country: None (occurrence: None)
  Receive Date: 20081211
  Receipt Date: 20081203
  Transmission Date: 20090506
  Serious: Yes (Other)
  Sender: FDA-Public Use
  Company Number: US-GENENTECH-273061

PATIENT

DRUGS (5)
  1. BEVACIZUMAB [Suspect]
     Indication: BREAST CANCER
     Dosage: 10 MG/KG, UNK
     Route: 042
     Dates: start: 20060821
  2. DOXORUBICIN [Concomitant]
     Indication: BREAST CANCER
     Dosage: 60 MG, UNK
     Route: 042
  3. CYCLOPHOSPHAMIDE [Concomitant]
     Indication: BREAST CANCER
     Dosage: 600 MG/M2, UNK
     Route: 042
  4. NEUPOGEN [Concomitant]
     Indication: DRUG USE FOR UNKNOWN INDICATION
     Dosage: 5 A?G/KG, QD
     Route: 058
  5. PACLITAXEL [Concomitant]
     Indication: BREAST CANCER
     Dosage: 175 MG/M2, UNK
     Route: 042

REACTIONS (1)
  - LACRIMATION INCREASED [None]
